FAERS Safety Report 7487485-1 (Version None)
Quarter: 2011Q2

REPORT INFORMATION
  Report Type: 
  Country: None (occurrence: None)
  Receive Date: 20110518
  Receipt Date: 20110510
  Transmission Date: 20111010
  Serious: Yes (Hospitalization)
  Sender: FDA-Public Use
  Company Number: DE-ELI_LILLY_AND_COMPANY-DE201105002737

PATIENT
  Age: 74 Year
  Sex: Female

DRUGS (3)
  1. METFORMIN HCL [Concomitant]
  2. MARCUMAR [Concomitant]
     Dosage: UNK
  3. BYETTA [Suspect]
     Indication: TYPE 2 DIABETES MELLITUS
     Dosage: 10 UG, BID
     Route: 058
     Dates: start: 20110101, end: 20110201

REACTIONS (6)
  - ANAEMIA [None]
  - HEPATIC ENZYME INCREASED [None]
  - ORAL CANDIDIASIS [None]
  - DERMATITIS ALLERGIC [None]
  - BLOOD PRESSURE DECREASED [None]
  - COAGULATION TEST ABNORMAL [None]
